FAERS Safety Report 13265764 (Version 4)
Quarter: 2017Q3

REPORT INFORMATION
  Report Type: Report from Study
  Country: US (occurrence: US)
  Receive Date: 20170223
  Receipt Date: 20170713
  Transmission Date: 20171127
  Serious: No
  Sender: FDA-Public Use
  Company Number: US-THERATECHNOLOGIES, INC.-TH-2017-00182

PATIENT

DRUGS (18)
  1. CITALOPRAM [Concomitant]
     Active Substance: CITALOPRAM HYDROBROMIDE
     Dosage: 20 MG MILLIGRAM(S), UNK
  2. FENOFIBRATE. [Concomitant]
     Active Substance: FENOFIBRATE
     Dosage: 200 MG MILLIGRAM(S), UNK
  3. TIZANIDINE. [Concomitant]
     Active Substance: TIZANIDINE
     Dosage: 2 MG MILLIGRAM(S), UNK
  4. EGRIFTA [Suspect]
     Active Substance: TESAMORELIN
     Indication: LIPODYSTROPHY ACQUIRED
     Dosage: 2 MG MILLIGRAM(S), DAILY DOSE
     Route: 058
     Dates: start: 20161221
  5. ACYCLOVIR                          /00587301/ [Concomitant]
     Active Substance: ACYCLOVIR
     Dosage: 800 MG MILLIGRAM(S), UNK
  6. EPZICOM [Concomitant]
     Active Substance: ABACAVIR SULFATE\LAMIVUDINE
     Dosage: UNK
  7. RAPAFLO [Concomitant]
     Active Substance: SILODOSIN
     Dosage: 8 MG MILLIGRAM(S), UNK
  8. BISOPROLOL FUM [Concomitant]
     Dosage: 5 MG MILLIGRAM(S), UNK
  9. OTHER THERAPEUTIC PRODUCTS [Concomitant]
     Active Substance: UNSPECIFIED INGREDIENT
     Dosage: 5 MG MILLIGRAM(S), UNK
  10. EGRIFTA [Suspect]
     Active Substance: TESAMORELIN
     Dosage: 2 MG MILLIGRAM(S), DAILY DOSE
     Route: 058
     Dates: end: 20170525
  11. CLOPIDOGREL [Concomitant]
     Active Substance: CLOPIDOGREL BISULFATE
     Dosage: 75 MG MILLIGRAM(S), UNK
  12. FINASTERIDE. [Concomitant]
     Active Substance: FINASTERIDE
     Dosage: 5 MG MILLIGRAM(S), UNK
  13. LISINOPRIL. [Concomitant]
     Active Substance: LISINOPRIL
     Dosage: 2.5 MG MILLIGRAM(S), UNK
  14. NAPROXEN. [Concomitant]
     Active Substance: NAPROXEN
     Dosage: 500 MG MILLIGRAM(S), UNK
  15. LORATADINE. [Concomitant]
     Active Substance: LORATADINE
     Dosage: 10 MG MILLIGRAM(S), UNK
  16. NORCO [Concomitant]
     Active Substance: ACETAMINOPHEN\HYDROCODONE BITARTRATE
     Dosage: 5-325 MG MILLIGRAM(S), UNK
  17. ATORVASTATIN [Concomitant]
     Active Substance: ATORVASTATIN
     Dosage: 40 MG MILLIGRAM(S), UNK
  18. KALETRA [Concomitant]
     Active Substance: LOPINAVIR\RITONAVIR
     Dosage: 200-50 MG MILLIGRAM(S), UNK

REACTIONS (5)
  - Joint swelling [Recovering/Resolving]
  - Joint stiffness [Unknown]
  - Muscular weakness [Unknown]
  - Injection site bruising [Recovered/Resolved]
  - Arthritis [Not Recovered/Not Resolved]

NARRATIVE: CASE EVENT DATE: 201701
